FAERS Safety Report 15731205 (Version 1)
Quarter: 2018Q4

REPORT INFORMATION
  Report Type: Spontaneous
  Country: US (occurrence: US)
  Receive Date: 20181217
  Receipt Date: 20181217
  Transmission Date: 20190205
  Serious: Yes (Life-Threatening, Hospitalization, Disabling)
  Sender: FDA-Public Use
  Company Number: None

PATIENT
  Age: 48 Year
  Sex: Female
  Weight: 126 kg

DRUGS (1)
  1. LUPRON [Suspect]
     Active Substance: LEUPROLIDE ACETATE
     Indication: BREAST CANCER
     Dosage: ?          OTHER FREQUENCY:ONCE A MONTH;?
     Route: 030
     Dates: end: 20131007

REACTIONS (32)
  - Varicose vein [None]
  - Tooth fracture [None]
  - Skin disorder [None]
  - Paralysis [None]
  - Disability [None]
  - Osteoarthritis [None]
  - Urinary tract infection [None]
  - Arthritis [None]
  - Muscle atrophy [None]
  - Atrophic vulvovaginitis [None]
  - Sexual dysfunction [None]
  - Vertigo [None]
  - Anxiety [None]
  - Body height decreased [None]
  - Dyspnoea [None]
  - Weight increased [None]
  - Personality change [None]
  - Vitamin D deficiency [None]
  - Deafness [None]
  - Visual impairment [None]
  - Depression [None]
  - Spinal disorder [None]
  - Myalgia [None]
  - Musculoskeletal stiffness [None]
  - Amnesia [None]
  - Alopecia [None]
  - Urinary incontinence [None]
  - Suicidal ideation [None]
  - Impaired work ability [None]
  - Neuropathy peripheral [None]
  - Central obesity [None]
  - Arthralgia [None]

NARRATIVE: CASE EVENT DATE: 20130920
